FAERS Safety Report 4299694-3 (Version None)
Quarter: 2004Q1

REPORT INFORMATION
  Report Type: 
  Country: None (occurrence: None)
  Receive Date: 20040126
  Receipt Date: 20031110
  Transmission Date: 20041129
  Serious: No
  Sender: FDA-Public Use
  Company Number: USA031152142

PATIENT
  Age: 6 Year
  Sex: Female

DRUGS (3)
  1. STRATTERA [Suspect]
     Indication: ATTENTION DEFICIT/HYPERACTIVITY DISORDER
     Dosage: 10 MG/1 DAY
     Dates: start: 20031109, end: 20031110
  2. THYROID TAB [Concomitant]
  3. CORTISONE [Concomitant]

REACTIONS (2)
  - BUCCOGLOSSAL SYNDROME [None]
  - FACE OEDEMA [None]
